FAERS Safety Report 6922739-6 (Version None)
Quarter: 2010Q3

REPORT INFORMATION
  Report Type: 
  Country: None (occurrence: None)
  Receive Date: 20100813
  Receipt Date: 20100806
  Transmission Date: 20110219
  Serious: Yes (Disabling, Other)
  Sender: FDA-Public Use
  Company Number: JP-BRISTOL-MYERS SQUIBB COMPANY-15098007

PATIENT
  Age: 37 Year
  Sex: Male
  Weight: 71 kg

DRUGS (4)
  1. KENACORT [Suspect]
     Indication: TRIGGER FINGER
     Dosage: ROUTE-INTRA-TENDON SHEATH 20MG TAKEN TWICE AND THREE TIMES AT OTHER CLINIC
     Dates: start: 20071201, end: 20081121
  2. KENACORT [Suspect]
     Indication: PAIN
     Dosage: ROUTE-INTRA-TENDON SHEATH 20MG TAKEN TWICE AND THREE TIMES AT OTHER CLINIC
     Dates: start: 20071201, end: 20081121
  3. KENACORT [Suspect]
     Indication: TENOSYNOVITIS STENOSANS
     Dosage: ROUTE-INTRA-TENDON SHEATH 20MG TAKEN TWICE AND THREE TIMES AT OTHER CLINIC
     Dates: start: 20071201, end: 20081121
  4. XYLOCAINE [Concomitant]
     Indication: TENOSYNOVITIS STENOSANS
     Dosage: INJ 1PERCENT
     Dates: start: 20071201, end: 20081121

REACTIONS (2)
  - SYNOVITIS [None]
  - TENDON RUPTURE [None]
